FAERS Safety Report 9674250 (Version 1)
Quarter: 2013Q4

REPORT INFORMATION
  Report Type: Spontaneous
  Country: US (occurrence: US)
  Receive Date: 20131107
  Receipt Date: 20131107
  Transmission Date: 20140711
  Serious: No
  Sender: FDA-Public Use
  Company Number: US-009507513-1311USA000139

PATIENT
  Sex: Female

DRUGS (9)
  1. JANUMET [Suspect]
     Dosage: 1 TABLET TWICE 50/1000
     Route: 048
     Dates: start: 20130305
  2. TYLENOL [Concomitant]
  3. DEPAKOTE [Concomitant]
  4. LEVOTHYROXINE SODIUM [Concomitant]
     Route: 048
  5. LOSARTAN POTASSIUM TABLETS [Concomitant]
  6. MIRTAZAPINE [Concomitant]
     Route: 048
  7. METOPROLOL [Concomitant]
  8. VITAMIN B COMPLEX [Concomitant]
  9. ALCID (OMPERAZOLE) [Concomitant]

REACTIONS (1)
  - Dysphagia [Not Recovered/Not Resolved]
